FAERS Safety Report 13053215 (Version 1)
Quarter: 2016Q4

REPORT INFORMATION
  Report Type: Spontaneous
  Country: US (occurrence: US)
  Receive Date: 20161220
  Receipt Date: 20161220
  Transmission Date: 20170207
  Serious: No
  Sender: FDA-Public Use
  Company Number: US-BIOVITRUM-2015US0621

PATIENT
  Age: 65 Year
  Sex: Male

DRUGS (7)
  1. LOTEMAX [Concomitant]
     Active Substance: LOTEPREDNOL ETABONATE
     Route: 047
  2. VORICONAZOLE. [Concomitant]
     Active Substance: VORICONAZOLE
     Route: 048
  3. ALPHA LIPOIC ACID [Concomitant]
     Active Substance: .ALPHA.-LIPOIC ACID
     Route: 048
  4. ACYCLOVIR. [Concomitant]
     Active Substance: ACYCLOVIR
     Route: 048
  5. ALLERGAN [Concomitant]
     Active Substance: PAPAIN
     Route: 047
  6. KINERET [Suspect]
     Active Substance: ANAKINRA
     Route: 047
  7. TACROLIMUS. [Concomitant]
     Active Substance: TACROLIMUS
     Route: 048

REACTIONS (3)
  - Keratopathy [Unknown]
  - Punctate keratitis [Unknown]
  - Corneal degeneration [Unknown]
